FAERS Safety Report 10472083 (Version 1)
Quarter: 2014Q3

REPORT INFORMATION
  Report Type: Spontaneous
  Country: CA (occurrence: CA)
  Receive Date: 20140924
  Receipt Date: 20140924
  Transmission Date: 20150326
  Serious: Yes (Hospitalization, Other)
  Sender: FDA-Public Use
  Company Number: CA-AMGEN-CANSP2014072287

PATIENT
  Age: 77 Year
  Sex: Female

DRUGS (4)
  1. MORPHINE [Concomitant]
     Active Substance: MORPHINE
  2. PROLIA [Suspect]
     Active Substance: DENOSUMAB
     Indication: OSTEOPOROSIS POSTMENOPAUSAL
     Dosage: 60 MG, Q6MO
     Route: 058
     Dates: start: 20121101
  3. VITAMIN D                          /00107901/ [Concomitant]
     Active Substance: ERGOCALCIFEROL
  4. CALCIUM [Concomitant]
     Active Substance: CALCIUM

REACTIONS (8)
  - Cerebrovascular accident [Unknown]
  - Gastrointestinal inflammation [Unknown]
  - Gait disturbance [Unknown]
  - Urinary tract infection [Unknown]
  - Weight decreased [Unknown]
  - Malaise [Unknown]
  - Sleep disorder due to general medical condition, insomnia type [Unknown]
  - Pain [Unknown]

NARRATIVE: CASE EVENT DATE: 201406
